FAERS Safety Report 6747468-3 (Version None)
Quarter: 2010Q2

REPORT INFORMATION
  Report Type: 
  Country: None (occurrence: None)
  Receive Date: 20100528
  Receipt Date: 20100526
  Transmission Date: 20101027
  Serious: Yes (Life-Threatening, Hospitalization, Disabling, Other)
  Sender: FDA-Public Use
  Company Number: US-MERCK-1004USA04710

PATIENT
  Age: 69 Year
  Sex: Male

DRUGS (10)
  1. PROSCAR [Suspect]
     Route: 048
  2. AMLODIPINE [Concomitant]
     Route: 065
  3. ASPIRIN [Concomitant]
     Route: 065
  4. LIPITOR [Concomitant]
     Route: 065
  5. LANTUS [Concomitant]
     Route: 065
  6. LEVAQUIN [Concomitant]
     Route: 065
  7. IMDUR [Concomitant]
     Route: 065
  8. LASIX [Concomitant]
     Route: 065
  9. CARVEDILOL [Concomitant]
     Route: 065
  10. PEPCID [Concomitant]
     Route: 048

REACTIONS (2)
  - DISEASE COMPLICATION [None]
  - PNEUMONIA [None]
